FAERS Safety Report 14372729 (Version 2)
Quarter: 2019Q4

REPORT INFORMATION
  Report Type: Report from Study
  Country: None (occurrence: US)
  Receive Date: 20180110
  Receipt Date: 20191124
  Transmission Date: 20200122
  Serious: Yes (Other)
  Sender: FDA-Public Use
  Company Number: US-ABBVIE-18K-163-2217192-00

PATIENT
  Age: 43 Year
  Sex: Male
  Weight: 93.07 kg

DRUGS (1)
  1. HUMIRA [Suspect]
     Active Substance: ADALIMUMAB
     Indication: HIDRADENITIS
     Route: 058
     Dates: start: 201701, end: 201801

REACTIONS (2)
  - Wrist fracture [Recovering/Resolving]
  - Osteochondrosis [Recovering/Resolving]

NARRATIVE: CASE EVENT DATE: 201711
